FAERS Safety Report 5371586-8 (Version None)
Quarter: 2007Q2

REPORT INFORMATION
  Report Type: 
  Country: None (occurrence: None)
  Receive Date: 20070625
  Receipt Date: 20070614
  Transmission Date: 20071010
  Serious: Yes (Disabling, Other)
  Sender: FDA-Public Use
  Company Number: 2007SP010336

PATIENT
  Age: 45 Year
  Sex: Male
  Weight: 137.8935 kg

DRUGS (5)
  1. PEG-INTRON [Suspect]
     Indication: DRUG USE FOR UNKNOWN INDICATION
     Dosage: 150 MCG;
     Dates: start: 20061110
  2. RIBAVIRIN [Suspect]
     Indication: DRUG USE FOR UNKNOWN INDICATION
     Dosage: 1400 MG; QD; PO
     Route: 048
     Dates: start: 20061110
  3. VERAPAMIL [Suspect]
     Indication: DRUG USE FOR UNKNOWN INDICATION
     Dosage: SEE IMAGE
  4. DIOVAN [Concomitant]
  5. NEXIUM [Concomitant]

REACTIONS (4)
  - DEAFNESS UNILATERAL [None]
  - DRUG INTERACTION [None]
  - EPISTAXIS [None]
  - NO THERAPEUTIC RESPONSE [None]
